FAERS Safety Report 23271260 (Version 1)
Quarter: 2023Q4

REPORT INFORMATION
  Report Type: Spontaneous
  Country: US (occurrence: US)
  Receive Date: 20231207
  Receipt Date: 20231207
  Transmission Date: 20240109
  Serious: Yes (Other)
  Sender: FDA-Public Use
  Company Number: US-BAYER-2023A171548

PATIENT
  Sex: Female

DRUGS (2)
  1. KERENDIA [Suspect]
     Active Substance: FINERENONE
  2. SPIRONOLACTONE [Concomitant]
     Active Substance: SPIRONOLACTONE
     Dosage: 50 MG

REACTIONS (2)
  - Hyperkalaemia [None]
  - Glomerular filtration rate decreased [None]

NARRATIVE: CASE EVENT DATE: 20231129
